FAERS Safety Report 13614152 (Version 2)
Quarter: 2017Q2

REPORT INFORMATION
  Report Type: Report from Study
  Country: AR (occurrence: AR)
  Receive Date: 20170606
  Receipt Date: 20170607
  Transmission Date: 20170830
  Serious: Yes (Death, Hospitalization)
  Sender: FDA-Public Use
  Company Number: PHHY2017AR082931

PATIENT
  Sex: Male

DRUGS (1)
  1. EXFORGE [Suspect]
     Active Substance: AMLODIPINE BESYLATE\VALSARTAN
     Indication: PRODUCT USED FOR UNKNOWN INDICATION
     Dosage: (AMLODIPINE 5/VALSARTAN 320, UNITS NOT PROVIDED)
     Route: 065

REACTIONS (1)
  - Malaise [Fatal]
